FAERS Safety Report 9063914 (Version 2)
Quarter: 2013Q1

REPORT INFORMATION
  Report Type: Spontaneous
  Country: BH (occurrence: BH)
  Receive Date: 20130213
  Receipt Date: 20130304
  Transmission Date: 20140127
  Serious: Yes (Other)
  Sender: FDA-Public Use
  Company Number: PHHY2013BH007727

PATIENT
  Sex: 0

DRUGS (2)
  1. VOLTAREN [Suspect]
     Indication: PAIN
     Dosage: 1 DF, QD
     Dates: start: 20130121, end: 20130121
  2. AUGMENTIN                               /UNK/ [Concomitant]
     Indication: PYREXIA
     Dosage: 1 DF, QD
     Route: 030
     Dates: start: 20130121, end: 20130121

REACTIONS (4)
  - Hypersensitivity [Unknown]
  - Dyspnoea [Recovering/Resolving]
  - Rash generalised [Recovering/Resolving]
  - Injection site rash [Recovering/Resolving]
